FAERS Safety Report 22640028 (Version 1)
Quarter: 2023Q2

REPORT INFORMATION
  Report Type: Report from Study
  Country: US (occurrence: US)
  Receive Date: 20230626
  Receipt Date: 20230626
  Transmission Date: 20230722
  Serious: Yes (Hospitalization)
  Sender: FDA-Public Use
  Company Number: US-NOVITIUMPHARMA-2023USNVP00989

PATIENT
  Age: 16 Year
  Sex: Male
  Weight: 114 kg

DRUGS (6)
  1. CARGLUMIC ACID [Suspect]
     Active Substance: CARGLUMIC ACID
     Indication: Propionic acidaemia
     Route: 048
     Dates: start: 20220721
  2. CARGLUMIC ACID [Suspect]
     Active Substance: CARGLUMIC ACID
     Route: 048
     Dates: start: 20220721
  3. CARGLUMIC ACID [Suspect]
     Active Substance: CARGLUMIC ACID
     Route: 048
     Dates: start: 20220721
  4. KEPPRA [Concomitant]
     Active Substance: LEVETIRACETAM
     Indication: Product used for unknown indication
     Dosage: 100MG/5ML
     Route: 048
  5. LEVOCARNITINE [Concomitant]
     Active Substance: LEVOCARNITINE
     Indication: Product used for unknown indication
  6. Natalol [Concomitant]
     Indication: Product used for unknown indication

REACTIONS (1)
  - Hyperammonaemia [Not Recovered/Not Resolved]
